FAERS Safety Report 9372404 (Version 1)
Quarter: 2013Q2

REPORT INFORMATION
  Report Type: Report from Study
  Country: US (occurrence: US)
  Receive Date: 20130627
  Receipt Date: 20130627
  Transmission Date: 20140414
  Serious: Yes (Death)
  Sender: FDA-Public Use
  Company Number: US-MYLANLABS-2012S1022800

PATIENT
  Age: 79 Year
  Sex: Male

DRUGS (7)
  1. CLOZAPINE TABLETS [Suspect]
     Indication: DEMENTIA
     Route: 048
     Dates: start: 201004, end: 201209
  2. CLOZAPINE TABLETS [Suspect]
     Indication: PARKINSON^S DISEASE
     Route: 048
     Dates: start: 201004, end: 201209
  3. SINEMET [Concomitant]
  4. LOSARTAN [Concomitant]
  5. MIRAPEX [Concomitant]
  6. CYMBALTA [Concomitant]
  7. ARICEPT [Concomitant]

REACTIONS (1)
  - Dementia [Fatal]
